FAERS Safety Report 26021148 (Version 1)
Quarter: 2025Q4

REPORT INFORMATION
  Report Type: Spontaneous
  Country: US (occurrence: US)
  Receive Date: 20251110
  Receipt Date: 20251110
  Transmission Date: 20260117
  Serious: No
  Sender: PFIZER
  Company Number: US-PFIZER INC-202300457424

PATIENT
  Age: 70 Year
  Sex: Female

DRUGS (1)
  1. XELJANZ [Suspect]
     Active Substance: TOFACITINIB CITRATE
     Indication: Psoriatic arthropathy
     Dosage: 5 MG, 2X/DAY (5 MG PO BID/5 MG ORAL TABLET, TAKE 1 TABLET BY MOUTH 2 TIMES A DAY)
     Route: 048
     Dates: start: 202411

REACTIONS (2)
  - Blood pressure increased [Unknown]
  - Product prescribing error [Unknown]
